FAERS Safety Report 15645827 (Version 1)
Quarter: 2018Q4

REPORT INFORMATION
  Report Type: Report from Study
  Country: NL (occurrence: NL)
  Receive Date: 20181121
  Receipt Date: 20181121
  Transmission Date: 20190205
  Serious: Yes (Other)
  Sender: FDA-Public Use
  Company Number: PHHY2018NL160233

PATIENT
  Age: 73 Year
  Sex: Male

DRUGS (2)
  1. SANDOSTATIN LAR DEPOT [Suspect]
     Active Substance: OCTREOTIDE ACETATE
     Indication: NEUROENDOCRINE TUMOUR
     Dosage: 30 MG / 2 ML, ONCE EVERY 4 WEEKS
     Route: 030
     Dates: start: 20140115
  2. SANDOSTATIN LAR DEPOT [Suspect]
     Active Substance: OCTREOTIDE ACETATE
     Dosage: 30 MG / 2 ML, ONCE EVERY 4 WEEKS
     Route: 030

REACTIONS (4)
  - Prostatic disorder [Not Recovered/Not Resolved]
  - Anal pruritus [Recovering/Resolving]
  - Bladder disorder [Not Recovered/Not Resolved]
  - Pruritus genital [Recovering/Resolving]

NARRATIVE: CASE EVENT DATE: 20181101
